FAERS Safety Report 9280580 (Version 2)
Quarter: 2013Q3

REPORT INFORMATION
  Report Type: Report from Study
  Country: JP (occurrence: JP)
  Receive Date: 20130509
  Receipt Date: 20130717
  Transmission Date: 20140515
  Serious: Yes (Life-Threatening)
  Sender: FDA-Public Use
  Company Number: JP-SANOFI-AVENTIS-2013SA046961

PATIENT
  Age: 58 Year
  Sex: Male

DRUGS (10)
  1. INSULIN GLARGINE [Suspect]
     Indication: TYPE 2 DIABETES MELLITUS
     Dosage: DOSE:4 UNIT(S)
     Route: 058
     Dates: start: 20121029, end: 20121118
  2. INSULIN GLARGINE [Suspect]
     Indication: TYPE 2 DIABETES MELLITUS
     Dosage: DOSE:6 UNIT(S)
     Route: 058
     Dates: start: 20121119, end: 20130120
  3. INSULIN GLARGINE [Suspect]
     Indication: TYPE 2 DIABETES MELLITUS
     Dosage: DOSE:8 UNIT(S)
     Route: 058
     Dates: start: 20130121, end: 20130219
  4. SOLOSTAR [Suspect]
     Indication: DEVICE THERAPY
     Dates: start: 20121029, end: 20121118
  5. SOLOSTAR [Suspect]
     Indication: DEVICE THERAPY
     Dates: start: 20121119, end: 20130120
  6. SOLOSTAR [Suspect]
     Indication: DEVICE THERAPY
     Dates: start: 20130121, end: 20130219
  7. MAINTATE [Concomitant]
     Indication: TYPE 2 DIABETES MELLITUS
     Route: 048
  8. ADALAT CR [Concomitant]
     Indication: TYPE 2 DIABETES MELLITUS
     Route: 048
     Dates: end: 20130121
  9. LIPITOR [Concomitant]
     Indication: TYPE 2 DIABETES MELLITUS
     Route: 048
  10. EXFORGE [Concomitant]
     Indication: TYPE 2 DIABETES MELLITUS
     Route: 048
     Dates: start: 20130122, end: 20130219

REACTIONS (1)
  - Angina pectoris [Recovering/Resolving]
